FAERS Safety Report 25363256 (Version 1)
Quarter: 2025Q2

REPORT INFORMATION
  Report Type: Spontaneous
  Country: US (occurrence: None)
  Receive Date: 20250526
  Receipt Date: 20250526
  Transmission Date: 20250717
  Serious: Yes (Disabling)
  Sender: FDA-CTU
  Company Number: None

PATIENT
  Age: 27 Year
  Sex: Male
  Weight: 85.5 kg

DRUGS (2)
  1. CYMBALTA [Suspect]
     Active Substance: DULOXETINE HYDROCHLORIDE
     Indication: Depression
     Dosage: FREQUENCY : DAILY;?
     Route: 048
  2. LEXAPRO [Concomitant]
     Active Substance: ESCITALOPRAM OXALATE

REACTIONS (20)
  - Penile size reduced [None]
  - Autonomic neuropathy [None]
  - Neuropathy peripheral [None]
  - Skin disorder [None]
  - Scrotal disorder [None]
  - Skin tightness [None]
  - Hypertonic bladder [None]
  - Post micturition dribble [None]
  - Premature ejaculation [None]
  - Ejaculation disorder [None]
  - Cold sweat [None]
  - Neurogenic bladder [None]
  - Cystitis noninfective [None]
  - Genital discomfort [None]
  - Spinal disorder [None]
  - Posture abnormal [None]
  - Product use complaint [None]
  - Angiopathy [None]
  - Skin discolouration [None]
  - Neuromyopathy [None]

NARRATIVE: CASE EVENT DATE: 20190113
